FAERS Safety Report 4846088-5 (Version None)
Quarter: 2005Q4

REPORT INFORMATION
  Report Type: 
  Country: None (occurrence: None)
  Receive Date: 20051130
  Receipt Date: 20051115
  Transmission Date: 20060501
  Serious: Yes (Hospitalization)
  Sender: FDA-Public Use
  Company Number: AND_0248_2005

PATIENT
  Age: 74 Year
  Sex: Male

DRUGS (10)
  1. DILTIAZEM HCL [Suspect]
     Indication: ATRIAL FIBRILLATION
     Dosage: 5 MG UNK IV
     Route: 042
  2. DILTIAZEM HCL [Suspect]
     Indication: ATRIAL FIBRILLATION
     Dosage: 30 MG QID PO
     Route: 048
  3. DILTIAZEM HCL [Suspect]
     Indication: ATRIAL FIBRILLATION
     Dosage: 120 MG QID PO
     Route: 048
  4. AMIODARONE HCL [Suspect]
     Indication: ATRIAL FIBRILLATION
     Dosage: 150 MG ONCE IV
     Route: 042
  5. AMIODARONE HCL [Suspect]
     Indication: ATRIAL FIBRILLATION
     Dosage: DF IV
  6. CHLOROTHIAZIDE [Concomitant]
  7. SPIRONOLACTONE [Concomitant]
  8. ALLOPURINOL [Concomitant]
  9. ATORVASTATIN CALCIUM [Concomitant]
  10. FLUTICASONE/SALMETEROL [Concomitant]

REACTIONS (10)
  - ABDOMINAL INFECTION [None]
  - BLOOD CREATINE INCREASED [None]
  - CHRONIC OBSTRUCTIVE PULMONARY DISEASE [None]
  - COLONIC PSEUDO-OBSTRUCTION [None]
  - CONDITION AGGRAVATED [None]
  - DIARRHOEA [None]
  - ENTEROCOLITIS [None]
  - GASTROINTESTINAL HYPOMOTILITY [None]
  - NEUTROPENIA [None]
  - OBSTRUCTION [None]
